FAERS Safety Report 13860311 (Version 1)
Quarter: 2017Q3

REPORT INFORMATION
  Report Type: Report from Study
  Country: US (occurrence: US)
  Receive Date: 20170811
  Receipt Date: 20170811
  Transmission Date: 20171127
  Serious: No
  Sender: FDA-Public Use
  Company Number: PHEH2017US025404

PATIENT
  Sex: Female

DRUGS (2)
  1. ENTRESTO [Suspect]
     Active Substance: SACUBITRIL\VALSARTAN
     Indication: CARDIAC FAILURE
     Dosage: 1 DF, (24 MG SACUBITRIL/26 MG VALSARTAN) BID
     Route: 048
     Dates: start: 20170725
  2. ENTRESTO [Suspect]
     Active Substance: SACUBITRIL\VALSARTAN
     Dosage: 1 DF, (1/2 OF 24 MG SACUBITRIL/26 MG VALSARTAN) BID
     Route: 048

REACTIONS (5)
  - Wrong technique in product usage process [Unknown]
  - Dizziness [Not Recovered/Not Resolved]
  - Drug prescribing error [Unknown]
  - Prescribed underdose [Unknown]
  - Weight decreased [Not Recovered/Not Resolved]
